FAERS Safety Report 16864680 (Version 1)
Quarter: 2019Q3

REPORT INFORMATION
  Report Type: Report from Study
  Country: CO (occurrence: CO)
  Receive Date: 20190928
  Receipt Date: 20190928
  Transmission Date: 20191005
  Serious: Yes (Death, Hospitalization, Other)
  Sender: FDA-Public Use
  Company Number: PHHY2019CO161741

PATIENT
  Sex: Male
  Weight: 90 kg

DRUGS (1)
  1. AFINITOR [Suspect]
     Active Substance: EVEROLIMUS
     Indication: RENAL CELL CARCINOMA
     Dosage: 10 MG, QD
     Route: 048
     Dates: start: 20190628

REACTIONS (8)
  - Choking [Unknown]
  - Spinal pain [Unknown]
  - Peripheral swelling [Unknown]
  - Diarrhoea [Unknown]
  - Gastritis [Unknown]
  - Pneumonia [Fatal]
  - Malaise [Unknown]
  - Pulmonary oedema [Unknown]
